FAERS Safety Report 5727684-X (Version None)
Quarter: 2008Q2

REPORT INFORMATION
  Report Type: 
  Country: None (occurrence: None)
  Receive Date: 20080505
  Receipt Date: 20080402
  Transmission Date: 20081010
  Serious: Yes (Hospitalization)
  Sender: FDA-Public Use
  Company Number: GB-BRISTOL-MYERS SQUIBB COMPANY-14172688

PATIENT
  Age: 40 Year
  Sex: Male
  Weight: 110 kg

DRUGS (5)
  1. CETUXIMAB [Suspect]
     Indication: COLORECTAL CANCER
     Dosage: 400 MG/M2, ONCE, IV, 22-JAN-2008 TO 22-JAN-2008.
     Route: 042
     Dates: end: 20080314
  2. OXALIPLATIN [Suspect]
     Indication: COLORECTAL CANCER
     Dosage: 300 MG ON DAY 1 OF CYCLE.
     Route: 042
     Dates: start: 20080122, end: 20080307
  3. CAPECITABINE [Suspect]
     Indication: COLORECTAL CANCER
     Dosage: 3600 MG, DAY 1-14 OF CYCLE.
     Route: 048
     Dates: start: 20080122, end: 20080307
  4. DEXAMETHASONE [Concomitant]
     Dates: start: 20080225, end: 20080303
  5. LANSOPRAZOLE [Concomitant]
     Dates: start: 20080225

REACTIONS (1)
  - CEREBRAL VENOUS THROMBOSIS [None]
